FAERS Safety Report 23527466 (Version 2)
Quarter: 2024Q1

REPORT INFORMATION
  Report Type: Report from Study
  Country: GB (occurrence: GB)
  Receive Date: 20240215
  Receipt Date: 20240311
  Transmission Date: 20240409
  Serious: Yes (Disabling)
  Sender: FDA-Public Use
  Company Number: GB-IPSEN Group, Research and Development-2023-13078

PATIENT
  Age: 46 Year
  Sex: Male

DRUGS (1)
  1. LANREOTIDE ACETATE [Suspect]
     Active Substance: LANREOTIDE ACETATE
     Indication: Acromegaly
     Dosage: 60MG/0.3ML
     Route: 058

REACTIONS (8)
  - Hyperhidrosis [Unknown]
  - Arthralgia [Unknown]
  - Fatigue [Recovered/Resolved]
  - Headache [Unknown]
  - Diarrhoea [Recovered/Resolved]
  - Abdominal discomfort [Recovered/Resolved]
  - Arthralgia [Unknown]
  - Abdominal pain lower [Recovered/Resolved]
